FAERS Safety Report 9638331 (Version 4)
Quarter: 2014Q2

REPORT INFORMATION
  Report Type: Spontaneous
  Country: US (occurrence: US)
  Receive Date: 20131022
  Receipt Date: 20140522
  Transmission Date: 20141212
  Serious: Yes (Hospitalization)
  Sender: FDA-Public Use
  Company Number: US-GLAXOSMITHKLINE-A1046202A

PATIENT
  Age: 69 Year
  Sex: Female

DRUGS (1)
  1. VOTRIENT [Suspect]
     Indication: MALIGNANT URINARY TRACT NEOPLASM
     Dosage: 200MG UNKNOWN
     Route: 065

REACTIONS (9)
  - Alopecia [Unknown]
  - Blood pressure increased [Unknown]
  - Heart rate decreased [Unknown]
  - Fatigue [Unknown]
  - Physiotherapy [Unknown]
  - Asthenia [Unknown]
  - Decreased immune responsiveness [Unknown]
  - Herpes zoster [Unknown]
  - Dental care [Unknown]
